FAERS Safety Report 17101546 (Version 7)
Quarter: 2020Q1

REPORT INFORMATION
  Report Type: Report from Study
  Country: FR (occurrence: FR)
  Receive Date: 20191202
  Receipt Date: 20200228
  Transmission Date: 20200409
  Serious: Yes (Hospitalization)
  Sender: FDA-Public Use
  Company Number: FR-EISAI MEDICAL RESEARCH-EC-2019-066168

PATIENT
  Age: 68 Year
  Sex: Male
  Weight: 80 kg

DRUGS (20)
  1. LOPERAMIDE [Concomitant]
     Active Substance: LOPERAMIDE
     Dates: start: 20190815
  2. LENVATINIB [Suspect]
     Active Substance: LENVATINIB
     Indication: HEPATOBILIARY CANCER
     Dosage: FLUCTUATED DOSAGE, STARTING DOSE AT 20 MILLIGRAM
     Route: 048
     Dates: start: 20190604, end: 20191105
  3. LENVATINIB [Suspect]
     Active Substance: LENVATINIB
     Route: 048
     Dates: start: 20191106, end: 20191115
  4. LYRICA [Concomitant]
     Active Substance: PREGABALIN
     Dates: start: 201810
  5. UROREC [Concomitant]
     Active Substance: SILODOSIN
     Dates: start: 201904
  6. MORPHINE [Concomitant]
     Active Substance: MORPHINE
     Dates: start: 201902
  7. PEMBROLIZUMAB. [Suspect]
     Active Substance: PEMBROLIZUMAB
     Indication: HEPATOBILIARY CANCER
     Route: 041
     Dates: start: 20190604, end: 20191016
  8. PANTOPRAZOLE [Concomitant]
     Active Substance: PANTOPRAZOLE
     Dates: start: 20190904
  9. MAG 2 [Concomitant]
     Active Substance: MAGNESIUM
     Dates: start: 20190925
  10. OXAZEPAM. [Concomitant]
     Active Substance: OXAZEPAM
     Dates: start: 201904
  11. LENVATINIB [Suspect]
     Active Substance: LENVATINIB
     Route: 048
     Dates: start: 20191118, end: 20191125
  12. PEMBROLIZUMAB. [Suspect]
     Active Substance: PEMBROLIZUMAB
     Route: 041
     Dates: start: 20191106, end: 20191106
  13. MIRTAZAPINE. [Concomitant]
     Active Substance: MIRTAZAPINE
     Dates: start: 201904
  14. ACETAMINOPHEN. [Concomitant]
     Active Substance: ACETAMINOPHEN
     Dates: start: 20191012
  15. OXYNORMORO [Concomitant]
     Active Substance: OXYCODONE HYDROCHLORIDE
     Dates: start: 20191016
  16. SMECTA [Concomitant]
     Active Substance: MONTMORILLONITE
     Dates: start: 20190821
  17. LENVATINIB [Suspect]
     Active Substance: LENVATINIB
     Route: 048
     Dates: start: 20191226
  18. PERINDOPRIL [Concomitant]
     Active Substance: PERINDOPRIL
     Dates: start: 201904
  19. ACEBUTOLOL [Concomitant]
     Active Substance: ACEBUTOLOL
     Dates: start: 201904
  20. KARDEGIC [Concomitant]
     Active Substance: ASPIRIN DL-LYSINE
     Dates: start: 201904

REACTIONS (3)
  - Vomiting [Recovered/Resolved]
  - Nausea [Recovered/Resolved]
  - Diarrhoea [Recovered/Resolved]

NARRATIVE: CASE EVENT DATE: 20191117
